FAERS Safety Report 8484758-0 (Version None)
Quarter: 2012Q3

REPORT INFORMATION
  Report Type: 
  Country: None (occurrence: None)
  Receive Date: 20120703
  Receipt Date: 20120625
  Transmission Date: 20120928
  Serious: Yes (Other)
  Sender: FDA-Public Use
  Company Number: US-SANOFI-AVENTIS-2012SA041815

PATIENT
  Age: 86 Year
  Sex: Female
  Weight: 47.72 kg

DRUGS (8)
  1. MULTAQ [Suspect]
     Route: 048
     Dates: end: 20120625
  2. SYNTHROID [Concomitant]
  3. WARFARIN SODIUM [Concomitant]
     Dosage: 5 X 2.5, 2 X 1.25
     Dates: start: 20060101
  4. IRON [Concomitant]
     Dosage: 2 X 325 MG
  5. AMLODIPINE BESYLATE [Concomitant]
     Indication: ATRIAL FIBRILLATION
  6. CALCIUM [Concomitant]
     Dosage: 2 X 500 MG
  7. MULTAQ [Suspect]
     Indication: ATRIAL FIBRILLATION
     Route: 048
     Dates: start: 20110729
  8. TOPROL-XL [Suspect]
     Route: 065

REACTIONS (6)
  - OBSTRUCTIVE AIRWAYS DISORDER [None]
  - DECREASED APPETITE [None]
  - HEADACHE [None]
  - DIARRHOEA [None]
  - MEMORY IMPAIRMENT [None]
  - HEART RATE INCREASED [None]
